FAERS Safety Report 6360045-1 (Version None)
Quarter: 2009Q3

REPORT INFORMATION
  Report Type: 
  Country: None (occurrence: None)
  Receive Date: 20090917
  Receipt Date: 20090909
  Transmission Date: 20100115
  Serious: Yes (Other)
  Sender: FDA-Public Use
  Company Number: PHHY2009IT38844

PATIENT
  Sex: Female

DRUGS (1)
  1. ZOMETA [Suspect]
     Indication: LIP AND/OR ORAL CAVITY CANCER
     Dosage: UNK
     Dates: start: 20030101, end: 20050501

REACTIONS (2)
  - OSTEONECROSIS [None]
  - SURGERY [None]
